FAERS Safety Report 5179765-X (Version None)
Quarter: 2006Q4

REPORT INFORMATION
  Report Type: 
  Country: None (occurrence: None)
  Receive Date: 20061211
  Receipt Date: 20061127
  Transmission Date: 20070319
  Serious: Yes (Hospitalization)
  Sender: FDA-Public Use
  Company Number: 2006116186

PATIENT
  Age: 83 Year
  Sex: Female

DRUGS (9)
  1. LYRICA [Suspect]
     Indication: BACK PAIN
     Dosage: 150 MG (75 MG, 2 IN 1 D),ORAL
     Route: 048
     Dates: start: 20060907, end: 20060917
  2. MICARDIS [Concomitant]
  3. FLECAINIDE ACETATE [Concomitant]
  4. SECTRAL [Concomitant]
  5. PAROXETINE HYDROCHLORIDE [Concomitant]
  6. LERCANIDIPINE [Concomitant]
  7. MYOLASTAN (TETRAZEPAM) [Concomitant]
  8. PREVISCAN (FLUINDIONE) [Concomitant]
  9. CANDESARTAN CILEXETIL (CANDESARTAN CILEXETIL) [Concomitant]

REACTIONS (2)
  - CYTOLYTIC HEPATITIS [None]
  - DIARRHOEA [None]
